FAERS Safety Report 10950262 (Version 1)
Quarter: 2015Q1

REPORT INFORMATION
  Report Type: Spontaneous
  Country: US (occurrence: US)
  Receive Date: 20150324
  Receipt Date: 20150324
  Transmission Date: 20150721
  Serious: Yes (Hospitalization, Other)
  Sender: FDA-Public Use
  Company Number: US-009507513-1110USA00461

PATIENT
  Sex: Female

DRUGS (3)
  1. ALENDRONATE SODIUM. [Suspect]
     Active Substance: ALENDRONATE SODIUM
     Indication: OSTEOPENIA
     Dosage: 10 MG, UNK
     Route: 048
     Dates: start: 20081104, end: 20100408
  2. FOSAMAX [Suspect]
     Active Substance: ALENDRONATE SODIUM
     Indication: OSTEOPENIA
     Dosage: 10 MG, UNK
     Route: 048
     Dates: start: 20021009, end: 20080202
  3. ALENDRONATE SODIUM. [Suspect]
     Active Substance: ALENDRONATE SODIUM
     Indication: OSTEOPENIA
     Dosage: 10 MG, UNK
     Dates: start: 20080303, end: 20081002

REACTIONS (9)
  - Hypercholesterolaemia [Unknown]
  - Peptic ulcer [Unknown]
  - Anaemia postoperative [Recovering/Resolving]
  - Hypokalaemia [Unknown]
  - Pain in extremity [Unknown]
  - Femur fracture [Recovered/Resolved]
  - Urinary tract infection bacterial [Unknown]
  - Hypertension [Unknown]
  - Hypertension [Unknown]

NARRATIVE: CASE EVENT DATE: 2009
